FAERS Safety Report 25727909 (Version 1)
Quarter: 2025Q3

REPORT INFORMATION
  Report Type: Spontaneous
  Country: US (occurrence: None)
  Receive Date: 20250826
  Receipt Date: 20250826
  Transmission Date: 20251020
  Serious: Yes (Life-Threatening)
  Sender: FDA-CTU
  Company Number: None

PATIENT

DRUGS (1)
  1. CEFTRIAXONE [Suspect]
     Active Substance: CEFTRIAXONE
     Indication: Pyelonephritis

REACTIONS (7)
  - Dyspnoea [None]
  - Erythema [None]
  - Hyperhidrosis [None]
  - Respiratory distress [None]
  - Therapy cessation [None]
  - Tachycardia [None]
  - Contrast media reaction [None]

NARRATIVE: CASE EVENT DATE: 20240408
